FAERS Safety Report 9417573 (Version 3)
Quarter: 2013Q3

REPORT INFORMATION
  Report Type: Spontaneous
  Country: FR (occurrence: FR)
  Receive Date: 20130724
  Receipt Date: 20130830
  Transmission Date: 20140515
  Serious: Yes (Other)
  Sender: FDA-Public Use
  Company Number: FR-PFIZER INC-2013215228

PATIENT
  Age: 71 Year
  Sex: Male
  Weight: 88.9 kg

DRUGS (7)
  1. DOSTINEX [Suspect]
     Indication: PITUITARY TUMOUR BENIGN
     Dosage: 3 DF, WEEKLY
     Route: 048
     Dates: start: 201104
  2. DOSTINEX [Suspect]
     Dosage: 1 DF, 1X/DAY
     Dates: start: 2012
  3. COAPROVEL [Concomitant]
     Indication: HYPERTENSION
     Dosage: 150/12.5 1X/DAY
     Route: 048
  4. LEVOTHYROX [Concomitant]
     Indication: THYROID DISORDER
     Dosage: 75 UG, 1X/DAY
     Route: 048
     Dates: start: 201105
  5. CORDARONE [Concomitant]
     Indication: ARRHYTHMIA
     Dosage: 200 MG, 1X/DAY
     Route: 048
  6. KARDEGIC [Concomitant]
     Indication: CORONARY ARTERY DISEASE
     Dosage: 75 MG, 1X/DAY
     Route: 048
  7. TAHOR [Concomitant]
     Indication: CORONARY ARTERY DISEASE
     Dosage: 40 MG, ONCE DAILY
     Route: 048

REACTIONS (5)
  - Blindness unilateral [Unknown]
  - Visual acuity reduced [Unknown]
  - Bronchitis chronic [Recovering/Resolving]
  - Somnolence [Not Recovered/Not Resolved]
  - Drug ineffective [Unknown]
